FAERS Safety Report 16398915 (Version 1)
Quarter: 2019Q2

REPORT INFORMATION
  Report Type: Spontaneous
  Country: US (occurrence: US)
  Receive Date: 20190606
  Receipt Date: 20190606
  Transmission Date: 20190711
  Serious: No
  Sender: FDA-Public Use
  Company Number: US-PFIZER INC-2019237344

PATIENT
  Age: 76 Year
  Sex: Female
  Weight: 90.72 kg

DRUGS (1)
  1. GABAPENTIN. [Suspect]
     Active Substance: GABAPENTIN
     Indication: NEUROPATHY PERIPHERAL
     Dosage: UNK

REACTIONS (4)
  - Off label use [Unknown]
  - Aphasia [Unknown]
  - Drug ineffective for unapproved indication [Unknown]
  - Crying [Unknown]
